FAERS Safety Report 25913373 (Version 1)
Quarter: 2025Q4

REPORT INFORMATION
  Report Type: Spontaneous
  Country: CN (occurrence: CN)
  Receive Date: 20251013
  Receipt Date: 20251013
  Transmission Date: 20260118
  Serious: Yes (Other)
  Sender: Onesource Specialty Pharma
  Company Number: CN-STRIDES ARCOLAB LIMITED-2025OS000927

PATIENT

DRUGS (16)
  1. ETOPOSIDE [Suspect]
     Active Substance: ETOPOSIDE
     Indication: Small cell lung cancer
     Dosage: FIRSTLINE, TOTAL OF SIX CYCLES
     Route: 065
     Dates: start: 20210410, end: 20210803
  2. ETOPOSIDE [Suspect]
     Active Substance: ETOPOSIDE
     Indication: Penile cancer
     Dosage: SECOND LINE TREATMENT OF ANOTHER SIX CYCLES
     Route: 065
     Dates: start: 20220125, end: 20220530
  3. ETOPOSIDE [Suspect]
     Active Substance: ETOPOSIDE
     Indication: Penile squamous cell carcinoma
  4. CISPLATIN [Suspect]
     Active Substance: CISPLATIN
     Indication: Small cell lung cancer
     Dosage: FIRSTLINE, TOTAL OF SIX CYCLES
     Route: 065
     Dates: start: 20210410, end: 20210803
  5. CISPLATIN [Suspect]
     Active Substance: CISPLATIN
     Indication: Penile cancer
     Dosage: SECOND LINE TREATMENT OF ANOTHER SIX CYCLES
     Route: 065
     Dates: start: 20220125, end: 20220530
  6. CISPLATIN [Suspect]
     Active Substance: CISPLATIN
     Indication: Metastasis
  7. TORIPALIMAB [Suspect]
     Active Substance: TORIPALIMAB
     Indication: Small cell lung cancer
     Dosage: FIRSTLINE, TOTAL OF SIX CYCLES
     Route: 065
     Dates: start: 20210410, end: 20210803
  8. TORIPALIMAB [Suspect]
     Active Substance: TORIPALIMAB
     Indication: Penile cancer
  9. TORIPALIMAB [Suspect]
     Active Substance: TORIPALIMAB
     Indication: Metastasis
  10. IRINOTECAN [Suspect]
     Active Substance: IRINOTECAN
     Indication: Small cell lung cancer
     Dosage: UNK
     Route: 065
  11. IRINOTECAN [Suspect]
     Active Substance: IRINOTECAN
     Indication: Penile cancer
  12. IRINOTECAN [Suspect]
     Active Substance: IRINOTECAN
     Indication: Metastasis
  13. CATEQUENTINIB [Suspect]
     Active Substance: CATEQUENTINIB
     Indication: Small cell lung cancer
     Dosage: UNK
     Route: 065
  14. CATEQUENTINIB [Suspect]
     Active Substance: CATEQUENTINIB
     Indication: Penile cancer
  15. CATEQUENTINIB [Suspect]
     Active Substance: CATEQUENTINIB
     Indication: Metastasis
  16. ZOLEDRONIC ACID [Concomitant]
     Active Substance: ZOLEDRONIC ACID
     Indication: Prophylaxis
     Dosage: EVERY 28 DAYS
     Route: 065

REACTIONS (4)
  - Neoplasm progression [Unknown]
  - Neurotoxicity [Unknown]
  - Leukopenia [Unknown]
  - Therapy partial responder [Unknown]

NARRATIVE: CASE EVENT DATE: 20220121
